FAERS Safety Report 9206910 (Version 1)
Quarter: 2013Q2

REPORT INFORMATION
  Report Type: Spontaneous
  Country: IT (occurrence: IT)
  Receive Date: 20130403
  Receipt Date: 20130403
  Transmission Date: 20140414
  Serious: Yes (Other)
  Sender: FDA-Public Use
  Company Number: IT-UCBSA-081955

PATIENT
  Age: 70 Year
  Sex: Male

DRUGS (7)
  1. GLYCERYL TRINITRATE [Suspect]
     Indication: CHEST PAIN
     Route: 062
     Dates: start: 20121221, end: 20121221
  2. METFORMAL [Concomitant]
  3. CARDIOASPIRIN [Concomitant]
     Dosage: (STRENGTH: 100MG)
  4. LUCEN [Concomitant]
  5. KARVEZIDE [Concomitant]
  6. DOXAZOSIN MESYLATE [Concomitant]
  7. CARVEDILOL [Concomitant]

REACTIONS (6)
  - Syncope [Recovering/Resolving]
  - Fall [Unknown]
  - Facial bones fracture [Unknown]
  - Tendon injury [Unknown]
  - Vertigo [Recovering/Resolving]
  - Vision blurred [Recovering/Resolving]
